FAERS Safety Report 7374522-8 (Version None)
Quarter: 2011Q1

REPORT INFORMATION
  Report Type: 
  Country: None (occurrence: None)
  Receive Date: 20110325
  Receipt Date: 20100208
  Transmission Date: 20110831
  Serious: No
  Sender: FDA-Public Use
  Company Number: US-MYLANLABS-2010S1002146

PATIENT
  Age: 54 Year
  Sex: Male
  Weight: 67.59 kg

DRUGS (6)
  1. FENTANYL-100 [Suspect]
     Indication: GROIN PAIN
     Dosage: CHANGED PATCHES Q3D
     Route: 062
     Dates: start: 20080101, end: 20100101
  2. FENTANYL-100 [Suspect]
     Indication: NEURALGIA
     Dosage: CHANGED PATCHES Q3D
     Route: 062
     Dates: start: 20080101, end: 20100101
  3. FENTANYL-100 [Suspect]
     Route: 062
     Dates: start: 20100101, end: 20100101
  4. PERCOCET [Concomitant]
  5. FENTANYL-100 [Suspect]
     Route: 062
     Dates: start: 20100101, end: 20100101
  6. SEROQUEL [Concomitant]

REACTIONS (6)
  - PYREXIA [None]
  - NAUSEA [None]
  - LOSS OF CONSCIOUSNESS [None]
  - VOMITING [None]
  - DRUG EFFECT INCREASED [None]
  - SOMNOLENCE [None]
